FAERS Safety Report 18363416 (Version 1)
Quarter: 2020Q4

REPORT INFORMATION
  Report Type: Spontaneous
  Country: US (occurrence: US)
  Receive Date: 20201009
  Receipt Date: 20201009
  Transmission Date: 20210114
  Serious: Yes (Other)
  Sender: FDA-Public Use
  Company Number: US-SUN PHARMACEUTICAL INDUSTRIES LTD-2020R1-263263

PATIENT
  Age: 57 Year
  Sex: Male

DRUGS (7)
  1. RISEDRONATE [Suspect]
     Active Substance: RISEDRONATE SODIUM
     Dosage: 30 MILLIGRAM, TWICE WEEKLY
     Route: 065
  2. ETIDRONATE [Suspect]
     Active Substance: ETIDRONATE DISODIUM
     Indication: PRODUCT USED FOR UNKNOWN INDICATION
     Dosage: 400 MILLIGRAM, DAILY
     Route: 065
  3. SODIUM MONOFLUOROPHOSPHATE. [Suspect]
     Active Substance: SODIUM MONOFLUOROPHOSPHATE
     Indication: OTOSCLEROSIS
     Dosage: UNK
     Route: 065
  4. VITAMIN D [Concomitant]
     Active Substance: VITAMIN D NOS
     Indication: OTOSCLEROSIS
     Route: 065
  5. RISEDRONATE [Suspect]
     Active Substance: RISEDRONATE SODIUM
     Dosage: 30 MILLIGRAM, TWICE WEEKLY
     Route: 065
  6. CALCIUM [Concomitant]
     Active Substance: CALCIUM
     Indication: OTOSCLEROSIS
     Route: 065
  7. RISEDRONATE [Suspect]
     Active Substance: RISEDRONATE SODIUM
     Indication: OTOSCLEROSIS
     Dosage: 30 MILLIGRAM, TWICE WEEKLY
     Route: 065

REACTIONS (1)
  - Condition aggravated [Unknown]
